FAERS Safety Report 5880130-8 (Version None)
Quarter: 2008Q3

REPORT INFORMATION
  Report Type: 
  Country: None (occurrence: None)
  Receive Date: 20080911
  Receipt Date: 20080911
  Transmission Date: 20090109
  Serious: No
  Sender: FDA-Public Use
  Company Number: None

PATIENT
  Age: 82 Year
  Sex: Male
  Weight: 75.7507 kg

DRUGS (1)
  1. HYDRALAZINE HCL [Suspect]
     Indication: HYPERTENSION
     Dosage: 25MG 1 PER DAY ORAL
     Route: 048
     Dates: start: 20080828, end: 20080829

REACTIONS (2)
  - FREQUENT BOWEL MOVEMENTS [None]
  - VOMITING [None]
